FAERS Safety Report 25553712 (Version 1)
Quarter: 2025Q3

REPORT INFORMATION
  Report Type: Report from Study
  Country: KR (occurrence: KR)
  Receive Date: 20250715
  Receipt Date: 20250715
  Transmission Date: 20251020
  Serious: Yes (Death, Hospitalization)
  Sender: KARYOPHARM THERAPEUTICS
  Company Number: KR-ANTENGENE-20250703241

PATIENT

DRUGS (11)
  1. SELINEXOR [Suspect]
     Active Substance: SELINEXOR
     Indication: Plasma cell myeloma
     Route: 048
     Dates: start: 20241115, end: 20241201
  2. ACETAMINOPHEN [Concomitant]
     Active Substance: ACETAMINOPHEN
     Indication: Prophylaxis
     Route: 048
     Dates: start: 20241117, end: 20241217
  3. TRIMADOL [Concomitant]
     Indication: Abdominal pain
     Route: 040
     Dates: start: 20241114
  4. EMEND [Concomitant]
     Active Substance: APREPITANT
     Indication: Prophylaxis
     Route: 048
     Dates: start: 20241115, end: 20241117
  5. BENZYDAMINE [Concomitant]
     Active Substance: BENZYDAMINE
     Indication: Prophylaxis
     Route: 048
     Dates: start: 20241115
  6. PHENIRAMINE [Concomitant]
     Active Substance: PHENIRAMINE
     Indication: Prophylaxis
     Route: 040
     Dates: start: 20241117
  7. FLUCONAZOLE [Concomitant]
     Active Substance: FLUCONAZOLE
     Indication: Prophylaxis
     Route: 048
     Dates: start: 20241114
  8. SULFAMETHOXAZOLE\TRIMETHOPRIM [Concomitant]
     Active Substance: SULFAMETHOXAZOLE\TRIMETHOPRIM
     Indication: Prophylaxis
     Route: 048
     Dates: start: 20241114
  9. URSODIOL [Concomitant]
     Active Substance: URSODIOL
     Indication: Prophylaxis
     Route: 048
     Dates: start: 20241114
  10. METOCLOPRAMIDE [Concomitant]
     Active Substance: METOCLOPRAMIDE
     Indication: Prophylaxis
     Route: 040
     Dates: start: 20241114
  11. INSULIN GLARGINE [Concomitant]
     Active Substance: INSULIN GLARGINE
     Indication: Diabetes mellitus
     Dates: start: 2017

REACTIONS (3)
  - Plasma cell myeloma [Fatal]
  - Pain [Not Recovered/Not Resolved]
  - Oedema [Not Recovered/Not Resolved]

NARRATIVE: CASE EVENT DATE: 20241115
